FAERS Safety Report 7523512-0 (Version None)
Quarter: 2011Q2

REPORT INFORMATION
  Report Type: 
  Country: None (occurrence: None)
  Receive Date: 20110603
  Receipt Date: 20110520
  Transmission Date: 20111010
  Serious: No
  Sender: FDA-Public Use
  Company Number: US-B.I. PHARMACEUTICALS,INC./RIDGEFIELD-2011-BP-13723BP

PATIENT
  Sex: Male

DRUGS (7)
  1. HYTRIN [Concomitant]
     Indication: BENIGN PROSTATIC HYPERPLASIA
     Route: 048
     Dates: start: 19970101
  2. SPIRIVA [Suspect]
     Indication: EMPHYSEMA
     Dosage: 18 MCG
     Route: 055
     Dates: start: 20100801
  3. COMBIVENT [Concomitant]
     Indication: EMPHYSEMA
     Dosage: 8 PUF
     Route: 055
     Dates: start: 20100801
  4. SINGULAIR [Concomitant]
     Indication: SEASONAL ALLERGY
     Route: 048
     Dates: start: 20080101
  5. FLONASE [Concomitant]
     Indication: SEASONAL ALLERGY
     Dates: start: 20080101
  6. PROSCAR [Concomitant]
     Indication: BENIGN PROSTATIC HYPERPLASIA
     Route: 048
     Dates: start: 19970101
  7. ATROVENT [Concomitant]
     Indication: SEASONAL ALLERGY
     Route: 055
     Dates: start: 20080101

REACTIONS (3)
  - DRY MOUTH [None]
  - DIZZINESS [None]
  - FATIGUE [None]
